FAERS Safety Report 8178239-1 (Version None)
Quarter: 2012Q1

REPORT INFORMATION
  Report Type: 
  Country: None (occurrence: None)
  Receive Date: 20120301
  Receipt Date: 20120222
  Transmission Date: 20120608
  Serious: Yes (Other)
  Sender: FDA-Public Use
  Company Number: FI-JNJFOC-20120212310

PATIENT
  Age: 21 Year
  Sex: Male

DRUGS (6)
  1. REMICADE [Suspect]
     Indication: UVEITIS
     Route: 042
     Dates: start: 20101115
  2. REMICADE [Suspect]
     Route: 042
     Dates: start: 20120222
  3. REMICADE [Suspect]
     Route: 042
     Dates: start: 20120118
  4. REMICADE [Suspect]
     Indication: JUVENILE ARTHRITIS
     Route: 042
     Dates: start: 20101115
  5. REMICADE [Suspect]
     Route: 042
     Dates: start: 20120222
  6. REMICADE [Suspect]
     Route: 042
     Dates: start: 20120118

REACTIONS (3)
  - NASOPHARYNGITIS [None]
  - PYREXIA [None]
  - BLOOD PRESSURE DECREASED [None]
